FAERS Safety Report 9396799 (Version 1)
Quarter: 2013Q3

REPORT INFORMATION
  Report Type: Other
  Country: FR (occurrence: FR)
  Receive Date: 20130712
  Receipt Date: 20130712
  Transmission Date: 20140515
  Serious: Yes (Other)
  Sender: FDA-Public Use
  Company Number: FR-BRISTOL-MYERS SQUIBB COMPANY-19076231

PATIENT
  Age: 46 Year
  Sex: Female

DRUGS (2)
  1. LEVODOPA + CARBIDOPA [Suspect]
     Indication: PARKINSON^S DISEASE
  2. ROPINIROLE [Concomitant]
     Indication: PARKINSON^S DISEASE

REACTIONS (3)
  - Foot fracture [Unknown]
  - Lumbar vertebral fracture [Unknown]
  - Dyskinesia [Recovered/Resolved]
